FAERS Safety Report 19230943 (Version 2)
Quarter: 2023Q1

REPORT INFORMATION
  Report Type: Spontaneous
  Country: US (occurrence: US)
  Receive Date: 20210507
  Receipt Date: 20230213
  Transmission Date: 20230417
  Serious: No
  Sender: FDA-Public Use
  Company Number: US-BRISTOL-MYERS SQUIBB COMPANY-BMS-2021-044754

PATIENT
  Age: 75 Year
  Sex: Female
  Weight: 87 kg

DRUGS (7)
  1. ELIQUIS [Suspect]
     Active Substance: APIXABAN
     Indication: Thrombosis prophylaxis
     Route: 048
  2. CALAN [Concomitant]
     Active Substance: VERAPAMIL HYDROCHLORIDE
     Indication: Atrial fibrillation
     Dosage: 240MG TABLET, TAKE HALF A TABLET ONCE A DAY BY MOUTH
     Route: 048
  3. CALAN [Concomitant]
     Active Substance: VERAPAMIL HYDROCHLORIDE
     Indication: Cardiac disorder
  4. CALAN [Concomitant]
     Active Substance: VERAPAMIL HYDROCHLORIDE
     Indication: Blood pressure abnormal
  5. ALLOPURINOL [Concomitant]
     Active Substance: ALLOPURINOL
     Indication: Gout
     Dosage: STARTED ABOUT 30 YEARS AGO
  6. FUROSEMIDE [Concomitant]
     Active Substance: FUROSEMIDE
     Indication: Product used for unknown indication
     Dosage: STARTED WITH 20MG PROBABLY 30 YEARS AGO, WATER PILL
  7. FUROSEMIDE [Concomitant]
     Active Substance: FUROSEMIDE
     Dosage: STARTED WITH 20MG PROBABLY 30 YEARS AGO

REACTIONS (1)
  - Contusion [Unknown]
